FAERS Safety Report 23428003 (Version 3)
Quarter: 2024Q1

REPORT INFORMATION
  Report Type: Spontaneous
  Country: US (occurrence: US)
  Receive Date: 20240122
  Receipt Date: 20240123
  Transmission Date: 20240409
  Serious: No
  Sender: FDA-Public Use
  Company Number: ae001US24

PATIENT
  Age: 46 Year
  Sex: Female
  Weight: 72.58 kg

DRUGS (4)
  1. ASCLERA [Suspect]
     Active Substance: POLIDOCANOL
     Indication: Spider vein
     Dates: start: 20240105, end: 20240105
  2. DEXAMETHASONE [Concomitant]
     Active Substance: DEXAMETHASONE
  3. AMOXICILLIN [Concomitant]
     Active Substance: AMOXICILLIN
  4. ASCLERA [Suspect]
     Active Substance: POLIDOCANOL
     Indication: Spider vein

REACTIONS (5)
  - Administration site extravasation [Unknown]
  - Contusion [Unknown]
  - Pain [Unknown]
  - Swelling [Unknown]
  - Blister [Unknown]

NARRATIVE: CASE EVENT DATE: 20240106
